FAERS Safety Report 11336688 (Version 1)
Quarter: 2015Q3

REPORT INFORMATION
  Report Type: Other
  Country: GB (occurrence: GB)
  Receive Date: 20150804
  Receipt Date: 20150804
  Transmission Date: 20151125
  Serious: Yes (Other)
  Sender: FDA-Public Use
  Company Number: GB-SHIRE-GB201508840

PATIENT
  Age: 48 Year
  Sex: Male

DRUGS (1)
  1. CINRYZE [Suspect]
     Active Substance: HUMAN C1-ESTERASE INHIBITOR
     Indication: PRODUCT USED FOR UNKNOWN INDICATION
     Dosage: UNK, UNKNOWN
     Route: 042

REACTIONS (7)
  - Movement disorder [Recovered/Resolved]
  - Unresponsive to stimuli [Recovered/Resolved]
  - Tooth disorder [Unknown]
  - Glassy eyes [Recovered/Resolved]
  - Hereditary angioedema [Unknown]
  - Fatigue [Unknown]
  - Sleep disorder [Unknown]

NARRATIVE: CASE EVENT DATE: 20150720
